FAERS Safety Report 9267360 (Version 1)
Quarter: 2013Q2

REPORT INFORMATION
  Report Type: Spontaneous
  Country: US (occurrence: US)
  Receive Date: 20130502
  Receipt Date: 20130502
  Transmission Date: 20140414
  Serious: No
  Sender: FDA-Public Use
  Company Number: US-009507513-1305USA000751

PATIENT
  Sex: Female

DRUGS (1)
  1. CLARINEX-D-24 [Suspect]
     Indication: PERENNIAL ALLERGY
     Dosage: 5/240MG/ONCE A DAY
     Route: 048
     Dates: start: 201011

REACTIONS (2)
  - Fatigue [Recovering/Resolving]
  - Dizziness [Recovering/Resolving]
